FAERS Safety Report 9667508 (Version 2)
Quarter: 2014Q1

REPORT INFORMATION
  Report Type: Spontaneous
  Country: US (occurrence: US)
  Receive Date: 20131104
  Receipt Date: 20140313
  Transmission Date: 20141002
  Serious: No
  Sender: FDA-Public Use
  Company Number: US-BIOGENIDEC-2013BI091815

PATIENT
  Age: 44 Year
  Sex: Female

DRUGS (9)
  1. TECFIDERA [Suspect]
     Indication: MULTIPLE SCLEROSIS
     Route: 048
     Dates: start: 20130915
  2. TECFIDERA [Suspect]
     Indication: MULTIPLE SCLEROSIS
     Route: 048
     Dates: start: 20130918
  3. TECFIDERA [Suspect]
     Indication: MULTIPLE SCLEROSIS
     Route: 048
  4. TECFIDERA [Suspect]
     Indication: MULTIPLE SCLEROSIS
     Route: 048
     Dates: end: 20140227
  5. MYSOLINE [Concomitant]
  6. LEVOTHYROXIN [Concomitant]
  7. BUPROPION [Concomitant]
  8. VITAMIN D [Concomitant]
  9. PRESTIGE (NOS) [Concomitant]

REACTIONS (6)
  - Irritability [Recovered/Resolved]
  - Gastrooesophageal reflux disease [Unknown]
  - Pruritus [Not Recovered/Not Resolved]
  - Flushing [Recovered/Resolved]
  - Hot flush [Unknown]
  - Dyspepsia [Unknown]
